FAERS Safety Report 6251305-3 (Version None)
Quarter: 2009Q2

REPORT INFORMATION
  Report Type: 
  Country: None (occurrence: None)
  Receive Date: 20090630
  Receipt Date: 20090626
  Transmission Date: 20091009
  Serious: Yes (Hospitalization, Other)
  Sender: FDA-Public Use
  Company Number: PHHY2009JP24251

PATIENT
  Age: 69 Year
  Sex: Male

DRUGS (3)
  1. VOLTAREN [Suspect]
     Indication: BACK PAIN
     Dosage: UNK
     Route: 048
  2. VOLTAREN [Suspect]
     Dosage: 25 MG, ONCE/SINGLE
     Route: 048
     Dates: start: 20090603, end: 20090603
  3. MUCOSTA [Concomitant]
     Dosage: 1 DF, ONCE/SINGLE
     Route: 048

REACTIONS (7)
  - ALTERED STATE OF CONSCIOUSNESS [None]
  - BLOOD PRESSURE DECREASED [None]
  - COLD SWEAT [None]
  - GENERALISED ERYTHEMA [None]
  - MALAISE [None]
  - SHOCK [None]
  - URTICARIA [None]
